FAERS Safety Report 7789567-3 (Version None)
Quarter: 2011Q3

REPORT INFORMATION
  Report Type: 
  Country: None (occurrence: None)
  Receive Date: 20110930
  Receipt Date: 20110922
  Transmission Date: 20111222
  Serious: Yes (Hospitalization)
  Sender: FDA-Public Use
  Company Number: GR-JNJFOC-20110902780

PATIENT
  Age: 51 Year
  Sex: Male

DRUGS (20)
  1. DOXORUBICIN HCL [Suspect]
     Route: 042
  2. DOXORUBICIN HCL [Suspect]
     Route: 042
  3. NORVASC [Concomitant]
     Indication: HYPERTENSION
     Route: 065
     Dates: end: 20110823
  4. VELCADE [Suspect]
     Indication: MULTIPLE MYELOMA
     Route: 042
  5. VELCADE [Suspect]
     Route: 042
  6. DEXAMETHASONE [Suspect]
     Route: 048
     Dates: end: 20110802
  7. DOXORUBICIN HCL [Suspect]
     Route: 042
  8. VELCADE [Suspect]
     Route: 042
  9. DEXAMETHASONE [Suspect]
     Route: 048
  10. DOXORUBICIN HCL [Suspect]
     Route: 042
  11. VELCADE [Suspect]
     Route: 042
  12. VELCADE [Suspect]
     Route: 042
  13. DOXORUBICIN HCL [Suspect]
     Route: 042
  14. DEXAMETHASONE [Suspect]
     Indication: MULTIPLE MYELOMA
     Route: 048
  15. DEXAMETHASONE [Suspect]
     Route: 048
  16. DOXORUBICIN HCL [Suspect]
     Indication: MULTIPLE MYELOMA
     Route: 042
     Dates: end: 20110802
  17. VELCADE [Suspect]
     Route: 042
     Dates: end: 20110802
  18. DEXAMETHASONE [Suspect]
     Route: 048
  19. DEXAMETHASONE [Suspect]
     Route: 048
  20. RAMIPRIL [Concomitant]
     Indication: HYPERTENSION
     Route: 065
     Dates: start: 20110824

REACTIONS (4)
  - OPTIC NEURITIS [None]
  - PAPILLOEDEMA [None]
  - LEUKAEMIA PLASMACYTIC [None]
  - BLINDNESS [None]
